FAERS Safety Report 9879689 (Version 2)
Quarter: 2014Q1

REPORT INFORMATION
  Report Type: Spontaneous
  Country: IT (occurrence: IT)
  Receive Date: 20140206
  Receipt Date: 20140307
  Transmission Date: 20141002
  Serious: Yes (Hospitalization)
  Sender: FDA-Public Use
  Company Number: IT-TEVA-458800ISR

PATIENT
  Age: 79 Year
  Sex: Male

DRUGS (5)
  1. HYDROCHLOROTHIAZIDE W/VALSARTAN [Suspect]
     Indication: HYPERTENSION
     Route: 048
  2. LEVOFLOXACIN [Suspect]
     Indication: BRONCHITIS
     Dosage: 500 MILLIGRAM DAILY;
     Route: 048
     Dates: start: 20131113, end: 20131119
  3. CIPROFLOXACIN [Suspect]
     Indication: BRONCHITIS
     Dosage: 1000 MILLIGRAM DAILY;
     Route: 048
     Dates: start: 20131107, end: 20131112
  4. PARACETAMOL [Concomitant]
     Indication: HAND FRACTURE
     Route: 048
  5. TAMSULOSIN HYDROCHLORIDE [Concomitant]
     Indication: PRODUCT USED FOR UNKNOWN INDICATION
     Dosage: .4 MILLIGRAM DAILY;
     Route: 048

REACTIONS (5)
  - Renal failure acute [Recovered/Resolved]
  - Urinary retention [Unknown]
  - Hypotension [Unknown]
  - Syncope [Unknown]
  - Asthenia [Unknown]
